FAERS Safety Report 4405672-3 (Version None)
Quarter: 2004Q3

REPORT INFORMATION
  Report Type: 
  Country: None (occurrence: None)
  Receive Date: 20040723
  Receipt Date: 20031110
  Transmission Date: 20050211
  Serious: No
  Sender: FDA-Public Use
  Company Number: US-GLAXOSMITHKLINE-A0439035A

PATIENT
  Age: 59 Year
  Sex: Female
  Weight: 97.3 kg

DRUGS (13)
  1. AVANDIA [Suspect]
     Dosage: 4MG TWICE PER DAY
     Route: 048
     Dates: start: 20031023, end: 20031110
  2. LANTUS [Concomitant]
  3. NEURONTIN [Concomitant]
     Dosage: 300MG FOUR TIMES PER DAY
  4. PROTONIX [Concomitant]
     Dosage: 40MG PER DAY
  5. SYNTHROID [Concomitant]
     Dosage: 1MG PER DAY
  6. PREMARIN [Concomitant]
     Dosage: .3U PER DAY
  7. ISORDIL [Concomitant]
     Dosage: 20MG PER DAY
  8. PERSANTIN INJ [Concomitant]
     Dosage: 50MG THREE TIMES PER DAY
  9. TOPROL-XL [Concomitant]
     Dosage: 50MG PER DAY
  10. PRAVACHOL [Concomitant]
     Dosage: 40U PER DAY
  11. ASPIRIN [Concomitant]
     Dosage: 81MG PER DAY
  12. DULCOLAX [Concomitant]
     Dosage: 5MG TWICE PER DAY
     Route: 048
  13. CLARITIN [Concomitant]
     Dosage: 10MG PER DAY

REACTIONS (3)
  - ABDOMINAL DISTENSION [None]
  - SWELLING [None]
  - WEIGHT INCREASED [None]
